FAERS Safety Report 19619087 (Version 1)
Quarter: 2021Q3

REPORT INFORMATION
  Report Type: Spontaneous
  Country: US (occurrence: US)
  Receive Date: 20210728
  Receipt Date: 20210728
  Transmission Date: 20211014
  Serious: No
  Sender: FDA-Public Use
  Company Number: US-ROCHE-2700799

PATIENT
  Age: 43 Year
  Sex: Female

DRUGS (4)
  1. XELODA [Suspect]
     Active Substance: CAPECITABINE
     Indication: PRODUCT USED FOR UNKNOWN INDICATION
     Route: 065
  2. NYSTATIN. [Concomitant]
     Active Substance: NYSTATIN
  3. TUKYSA [Suspect]
     Active Substance: TUCATINIB
     Indication: BREAST CANCER
  4. TUKYSA [Suspect]
     Active Substance: TUCATINIB
     Indication: BREAST CANCER FEMALE
     Dosage: 100MG BY MOUTH TWICE A DAY INSTEAD OF 250MG BY MOUTH TWICE A DAY FOR ONE WEEK
     Route: 048

REACTIONS (7)
  - Erythema [Unknown]
  - Ill-defined disorder [Unknown]
  - Oral fungal infection [Unknown]
  - Intentional product misuse [Unknown]
  - Skin fissures [Unknown]
  - Burning sensation [Unknown]
  - Dry skin [Unknown]

NARRATIVE: CASE EVENT DATE: 20201016
